FAERS Safety Report 10147024 (Version 1)
Quarter: 2014Q2

REPORT INFORMATION
  Report Type: Report from Study
  Country: KR (occurrence: KR)
  Receive Date: 20140501
  Receipt Date: 20140501
  Transmission Date: 20141212
  Serious: Yes (Hospitalization)
  Sender: FDA-Public Use
  Company Number: KR-GLAXOSMITHKLINE-B0990162A

PATIENT
  Age: 51 Year
  Sex: Female
  Weight: 37 kg

DRUGS (2)
  1. LAPATINIB DITOSYLATE [Suspect]
     Indication: BREAST CANCER
     Dosage: 1250MG PER DAY
     Route: 048
     Dates: start: 20120508
  2. CAPECITABINE [Concomitant]
     Indication: BREAST CANCER
     Dosage: 2300MG PER DAY
     Route: 048
     Dates: start: 20120508, end: 20120821

REACTIONS (1)
  - Catheter site infection [Recovered/Resolved]
